FAERS Safety Report 7450419-X (Version None)
Quarter: 2011Q2

REPORT INFORMATION
  Report Type: 
  Country: None (occurrence: None)
  Receive Date: 20110422
  Receipt Date: 20110411
  Transmission Date: 20111010
  Serious: No
  Sender: FDA-Public Use
  Company Number: 2011001803

PATIENT
  Age: 62 Year
  Sex: Female

DRUGS (9)
  1. TARCEVA [Suspect]
     Indication: PRODUCT USED FOR UNKNOWN INDICATION
     Dosage: 150 MG, QD, ORAL
     Route: 048
     Dates: start: 20091201, end: 20101201
  2. DILTIAZEM HYDROCHLORIDE [Concomitant]
  3. KETOPROFEN [Concomitant]
  4. EFFEXOR XR [Concomitant]
  5. NEXIUM [Concomitant]
  6. DIFFU K  (POTASSIUM CHLORIDE) [Concomitant]
  7. CONTRAMAL (TRAMADOL HYDROCHLORIDE) [Concomitant]
  8. ZOLPIDEM TARTRATE [Concomitant]
  9. SOLUPRED (PRENISOLONE SODIUM SULFOBENZOATE) [Concomitant]

REACTIONS (4)
  - XEROSIS [None]
  - ANDROGENETIC ALOPECIA [None]
  - DIARRHOEA [None]
  - ACNE [None]
